FAERS Safety Report 20138731 (Version 1)
Quarter: 2021Q4

REPORT INFORMATION
  Report Type: Spontaneous
  Country: CA (occurrence: None)
  Receive Date: 20211202
  Receipt Date: 20211202
  Transmission Date: 20220303
  Serious: Yes (Hospitalization)
  Sender: FDA-Public Use
  Company Number: CA-ROCHE-2969644

PATIENT
  Age: 55 Year
  Sex: Female

DRUGS (22)
  1. RITUXIMAB [Suspect]
     Active Substance: RITUXIMAB
     Indication: Pemphigus
     Route: 041
  2. RITUXIMAB [Suspect]
     Active Substance: RITUXIMAB
     Indication: Pemphigoid
  3. RITUXIMAB [Suspect]
     Active Substance: RITUXIMAB
     Indication: Pemphigus
     Route: 065
  4. RITUXIMAB [Suspect]
     Active Substance: RITUXIMAB
     Indication: Pemphigoid
  5. ASPIRIN [Concomitant]
     Active Substance: ASPIRIN
     Route: 065
  6. AMLODIPINE [Concomitant]
     Active Substance: AMLODIPINE BESYLATE
  7. ARANESP [Concomitant]
     Active Substance: DARBEPOETIN ALFA
     Route: 042
  8. ATORVASTATIN [Concomitant]
     Active Substance: ATORVASTATIN
     Route: 065
  9. AZATHIOPRINE [Concomitant]
     Active Substance: AZATHIOPRINE
  10. CETIRIZINE [Concomitant]
     Active Substance: CETIRIZINE HYDROCHLORIDE
  11. CLOBETASOL [Concomitant]
     Active Substance: CLOBETASOL
     Route: 065
  12. DOXYCYCLINE [Concomitant]
     Active Substance: DOXYCYCLINE
  13. EPOETIN ALFA [Concomitant]
     Active Substance: ERYTHROPOIETIN
  14. FUSIDIC ACID [Concomitant]
     Active Substance: FUSIDIC ACID
     Route: 065
  15. KAYEXALATE [Concomitant]
     Active Substance: SODIUM POLYSTYRENE SULFONATE
     Route: 048
  16. MUPIROCIN [Concomitant]
     Active Substance: MUPIROCIN
     Route: 061
  17. PERINDOPRIL [Concomitant]
     Active Substance: PERINDOPRIL
  18. PREDNISONE [Concomitant]
     Active Substance: PREDNISONE
  19. REPAGLINIDE [Concomitant]
     Active Substance: REPAGLINIDE
  20. SEVELAMER [Concomitant]
     Active Substance: SEVELAMER
  21. SODIUM BICARBONATE [Concomitant]
     Active Substance: SODIUM BICARBONATE
  22. TRESIBA [Concomitant]
     Active Substance: INSULIN DEGLUDEC

REACTIONS (5)
  - Dyspnoea [Unknown]
  - Intentional product use issue [Unknown]
  - Off label use [Unknown]
  - Pruritus [Unknown]
  - Pyrexia [Unknown]
